FAERS Safety Report 6670680-9 (Version None)
Quarter: 2010Q2

REPORT INFORMATION
  Report Type: 
  Country: None (occurrence: None)
  Receive Date: 20100407
  Receipt Date: 20100326
  Transmission Date: 20101027
  Serious: Yes (Hospitalization, Other)
  Sender: FDA-Public Use
  Company Number: US-PFIZER INC-2010038991

PATIENT
  Age: 14 Year
  Sex: Male

DRUGS (1)
  1. VERAPAMIL HCL [Suspect]
     Dosage: 180 MG, 30 TABL
     Route: 048

REACTIONS (5)
  - BRADYCARDIA [None]
  - HYPOTENSION [None]
  - ILEUS PARALYTIC [None]
  - LACTIC ACIDOSIS [None]
  - OVERDOSE [None]
